FAERS Safety Report 20390692 (Version 1)
Quarter: 2022Q1

REPORT INFORMATION
  Report Type: Spontaneous
  Country: US (occurrence: None)
  Receive Date: 20220127
  Receipt Date: 20220127
  Transmission Date: 20220423
  Serious: Yes (Death)
  Sender: FDA-Public Use
  Company Number: None

PATIENT
  Sex: Male

DRUGS (1)
  1. BROVANA [Suspect]
     Active Substance: ARFORMOTEROL TARTRATE
     Indication: Asthma
     Dosage: OTHER FREQUENCY : 15 MCG/2ML;?
     Route: 055
     Dates: start: 20200129, end: 20211031

REACTIONS (1)
  - Death [None]
